FAERS Safety Report 18694777 (Version 1)
Quarter: 2021Q1

REPORT INFORMATION
  Report Type: Spontaneous
  Country: US (occurrence: US)
  Receive Date: 20210104
  Receipt Date: 20210104
  Transmission Date: 20210419
  Serious: No
  Sender: FDA-Public Use
  Company Number: US-BAYER-2021-000022

PATIENT
  Sex: Male

DRUGS (1)
  1. MIRALAX [Suspect]
     Active Substance: POLYETHYLENE GLYCOL 3350
     Indication: GASTROINTESTINAL DISORDER
     Dosage: UNK,ENTIRE CAP FULL
     Route: 048
     Dates: start: 2020, end: 20201228

REACTIONS (2)
  - Therapeutic product effect variable [Unknown]
  - Incorrect dose administered [Unknown]
